FAERS Safety Report 12469524 (Version 1)
Quarter: 2016Q2

REPORT INFORMATION
  Report Type: Spontaneous
  Country: US (occurrence: US)
  Receive Date: 20160615
  Receipt Date: 20160615
  Transmission Date: 20160815
  Serious: No
  Sender: FDA-Public Use
  Company Number: US-GALDERMA-US16001566

PATIENT
  Age: 33 Year
  Sex: Female

DRUGS (2)
  1. MIRVASO [Suspect]
     Active Substance: BRIMONIDINE TARTRATE
     Indication: ROSACEA
     Dosage: 0.33%
     Route: 061
     Dates: start: 20160102, end: 20160102
  2. ALMOND OIL [Concomitant]
     Active Substance: ALMOND OIL
     Indication: THERAPEUTIC SKIN CARE TOPICAL
     Route: 061

REACTIONS (9)
  - Dry eye [Not Recovered/Not Resolved]
  - Rosacea [Not Recovered/Not Resolved]
  - Flushing [Not Recovered/Not Resolved]
  - Rebound effect [Not Recovered/Not Resolved]
  - Ocular rosacea [Not Recovered/Not Resolved]
  - Skin injury [Not Recovered/Not Resolved]
  - Ocular hyperaemia [Not Recovered/Not Resolved]
  - Skin disorder [Not Recovered/Not Resolved]
  - Pallor [Not Recovered/Not Resolved]

NARRATIVE: CASE EVENT DATE: 2016
